FAERS Safety Report 5964382-1 (Version None)
Quarter: 2008Q4

REPORT INFORMATION
  Report Type: 
  Country: None (occurrence: None)
  Receive Date: 20081124
  Receipt Date: 20081112
  Transmission Date: 20090506
  Serious: Yes (Hospitalization)
  Sender: FDA-Public Use
  Company Number: DE-PFIZER INC-2008096503

PATIENT
  Age: 59 Year
  Sex: Female

DRUGS (6)
  1. ZELDOX (CAPSULES) [Suspect]
     Indication: BIPOLAR DISORDER
     Dosage: DAILY DOSE:80MG
     Route: 048
     Dates: start: 20080508, end: 20080603
  2. QUILONUM - SLOW RELEASE [Suspect]
     Indication: BIPOLAR DISORDER
     Dosage: DAILY DOSE:675MG
     Route: 048
  3. PRAVASTATIN [Concomitant]
     Dosage: DAILY DOSE:10MG
     Route: 048
  4. METFORMIN HCL [Concomitant]
     Dosage: DAILY DOSE:2550MG
     Route: 048
  5. PROTHIPENDYL [Concomitant]
     Dosage: DAILY DOSE:80MG
     Route: 048
     Dates: start: 20080508
  6. COTRIM [Concomitant]
     Dosage: DAILY DOSE:1920MG
     Dates: start: 20080530, end: 20080603

REACTIONS (7)
  - ANTIPSYCHOTIC DRUG LEVEL INCREASED [None]
  - BLOOD CREATININE INCREASED [None]
  - DIZZINESS [None]
  - FLUID INTAKE REDUCED [None]
  - PARKINSONISM [None]
  - PYREXIA [None]
  - URINARY TRACT INFECTION [None]
